FAERS Safety Report 5026562-1 (Version None)
Quarter: 2006Q2

REPORT INFORMATION
  Report Type: 
  Country: None (occurrence: None)
  Receive Date: 20060615
  Receipt Date: 20060330
  Transmission Date: 20061013
  Serious: Yes (Hospitalization)
  Sender: FDA-Public Use
  Company Number: DE-ROCHE-442675

PATIENT
  Age: 75 Year
  Sex: Male
  Weight: 66 kg

DRUGS (3)
  1. CAPECITABINE [Suspect]
     Indication: COLORECTAL CANCER
     Dosage: TAKEN ON DAYS 1-14 IN A 22 DAY CYCLE.
     Route: 048
     Dates: start: 20060307, end: 20060406
  2. AVASTIN [Suspect]
     Indication: COLORECTAL CANCER
     Dosage: GIVEN ON DAY ONE OF A THREE WEEK CYCLE.
     Route: 042
     Dates: start: 20060307, end: 20060406
  3. IRINOTECAN [Suspect]
     Indication: COLORECTAL CANCER
     Dosage: TAKEN ON DAY 1 IN A 22 DAY CYCLE.
     Route: 042
     Dates: start: 20060307, end: 20060406

REACTIONS (4)
  - DEEP VEIN THROMBOSIS [None]
  - EROSIVE DUODENITIS [None]
  - HYPOVOLAEMIC SHOCK [None]
  - OESOPHAGEAL ULCER [None]
